FAERS Safety Report 20543100 (Version 5)
Quarter: 2023Q2

REPORT INFORMATION
  Report Type: Spontaneous
  Country: US (occurrence: US)
  Receive Date: 20220302
  Receipt Date: 20230511
  Transmission Date: 20230721
  Serious: Yes (Other)
  Sender: FDA-Public Use
  Company Number: US-PFIZER INC-202101780536

PATIENT
  Age: 68 Year
  Sex: Female
  Weight: 77.11 kg

DRUGS (9)
  1. IBRANCE [Suspect]
     Active Substance: PALBOCICLIB
     Indication: Breast cancer stage IV
     Dosage: 100 MG, CYCLIC (THREE WEEKS ON, ONE WEEK OFF)
  2. IBRANCE [Suspect]
     Active Substance: PALBOCICLIB
     Indication: Breast cancer female
     Dosage: 100 MG, CYCLIC (ONCE A DAY, 3 WEEKS AND 1 WEEK OFF)
  3. IBRANCE [Suspect]
     Active Substance: PALBOCICLIB
     Indication: Breast cancer metastatic
     Dosage: UNK
  4. METFORMIN [Concomitant]
     Active Substance: METFORMIN HYDROCHLORIDE
     Indication: Blood glucose increased
     Dosage: 500 MG
     Dates: start: 2020
  5. CHOLECALCIFEROL [Concomitant]
     Active Substance: CHOLECALCIFEROL
     Dosage: UNK
  6. VITAMIN C [Concomitant]
     Active Substance: ASCORBIC ACID
     Dosage: UNK
  7. VITAMIN E [Concomitant]
     Active Substance: .ALPHA.-TOCOPHEROL
     Dosage: UNK
  8. VITAMIN B COMPLEX [Concomitant]
     Active Substance: CYANOCOBALAMIN\DEXPANTHENOL\NIACINAMIDE\PYRIDOXINE HYDROCHLORIDE\RIBOFLAVIN 5^-PHOSPHATE SODIUM\THIA
     Dosage: UNK
  9. FASLODEX [Concomitant]
     Active Substance: FULVESTRANT

REACTIONS (17)
  - Hip fracture [Recovering/Resolving]
  - Neutropenia [Unknown]
  - Neuropathy peripheral [Unknown]
  - Alopecia [Unknown]
  - White blood cell count decreased [Unknown]
  - COVID-19 [Unknown]
  - Full blood count decreased [Unknown]
  - Viral infection [Unknown]
  - Nasopharyngitis [Unknown]
  - Cough [Unknown]
  - Fatigue [Unknown]
  - Weight decreased [Unknown]
  - Emotional distress [Unknown]
  - Neoplasm progression [Unknown]
  - Diarrhoea [Unknown]
  - Abdominal pain [Unknown]
  - Hot flush [Unknown]

NARRATIVE: CASE EVENT DATE: 20160101
